FAERS Safety Report 6760393-7 (Version None)
Quarter: 2010Q2

REPORT INFORMATION
  Report Type: 
  Country: None (occurrence: None)
  Receive Date: 20100604
  Receipt Date: 20100519
  Transmission Date: 20101027
  Serious: Yes (Other)
  Sender: FDA-Public Use
  Company Number: US-1181891

PATIENT
  Age: 79 Year
  Sex: Male

DRUGS (1)
  1. TRAVATAN [Suspect]
     Indication: GLAUCOMA
     Dosage: (1 GTT QD OU OPHTHALMIC)
     Route: 047
     Dates: start: 20091001

REACTIONS (2)
  - IRIS HYPERPIGMENTATION [None]
  - MELANOMA RECURRENT [None]
